FAERS Safety Report 8601395 (Version 2)
Quarter: 2014Q2

REPORT INFORMATION
  Report Type: Report from Study
  Country: US (occurrence: US)
  Receive Date: 20120606
  Receipt Date: 20140516
  Transmission Date: 20141212
  Serious: Yes (Hospitalization, Other)
  Sender: FDA-Public Use
  Company Number: US-ALEXION-A201201083

PATIENT
  Sex: 0

DRUGS (5)
  1. SOLIRIS [Suspect]
     Indication: HAEMOLYTIC URAEMIC SYNDROME
     Dosage: 1200 MG, Q2W
     Route: 042
     Dates: start: 20111107
  2. PROGRAF [Concomitant]
     Indication: IMMUNOSUPPRESSANT DRUG THERAPY
     Dosage: UNK
     Route: 065
     Dates: start: 20111017
  3. AMLODIPINE [Concomitant]
     Indication: HYPERTENSION
     Dosage: UNK, QD
     Route: 065
     Dates: start: 20111110
  4. CLONIDINE [Concomitant]
     Indication: HYPERTENSION
     Dosage: UNK, QD
     Route: 065
     Dates: start: 20111110
  5. COREG [Concomitant]
     Indication: HYPERTENSION
     Dosage: UNK,QD
     Route: 065
     Dates: start: 20111110

REACTIONS (6)
  - Haematemesis [Unknown]
  - Haematochezia [Unknown]
  - Medical device complication [Unknown]
  - Infection [Unknown]
  - Convulsion [Unknown]
  - Blood pressure decreased [Unknown]
